FAERS Safety Report 9973711 (Version 1)
Quarter: 2014Q1

REPORT INFORMATION
  Report Type: Spontaneous
  Country: AT (occurrence: AT)
  Receive Date: 20140306
  Receipt Date: 20140306
  Transmission Date: 20141002
  Serious: Yes (Other)
  Sender: FDA-Public Use
  Company Number: PHHY2014AT026525

PATIENT
  Age: 50 Year
  Sex: Male
  Weight: 75 kg

DRUGS (3)
  1. ZOMETA [Suspect]
     Indication: METASTASES TO BONE
     Dosage: 4 MG PER 100ML,EVERY 2 MONTHS
     Dates: start: 201102, end: 201310
  2. SUTENT [Concomitant]
     Indication: RENAL CELL CARCINOMA
     Dosage: UNK UKN, 1-0-0
  3. EXFORGE [Concomitant]
     Indication: HYPERTENSION
     Dosage: UNK UKN,10/160/25

REACTIONS (1)
  - Osteonecrosis of jaw [Not Recovered/Not Resolved]
